FAERS Safety Report 10910539 (Version 7)
Quarter: 2015Q2

REPORT INFORMATION
  Report Type: Spontaneous
  Country: US (occurrence: US)
  Receive Date: 20150312
  Receipt Date: 20150619
  Transmission Date: 20150821
  Serious: Yes (Death, Hospitalization)
  Sender: FDA-Public Use
  Company Number: US-UNITED THERAPEUTICS-UNT-2015-001912

PATIENT
  Age: 55 Year
  Sex: Male
  Weight: 72.56 kg

DRUGS (4)
  1. REMODULIN [Suspect]
     Active Substance: TREPROSTINIL
     Indication: PULMONARY ARTERIAL HYPERTENSION
     Dosage: 0.123 ?G/KG, CONTINUING
     Route: 058
     Dates: start: 20131011
  2. REMODULIN [Suspect]
     Active Substance: TREPROSTINIL
     Indication: PULMONARY HYPERTENSION
     Dosage: 0.101 ?G/KG, CONTINUING
     Route: 058
     Dates: start: 20131008
  3. REMODULIN [Suspect]
     Active Substance: TREPROSTINIL
     Dosage: 0.127 ?G/KG, CONTINUING
     Route: 058
     Dates: start: 20131003
  4. ADCIRCA [Concomitant]
     Active Substance: TADALAFIL
     Indication: PRODUCT USED FOR UNKNOWN INDICATION

REACTIONS (16)
  - Acute kidney injury [Unknown]
  - Death [Fatal]
  - Liver disorder [Unknown]
  - Dizziness [Unknown]
  - Infusion site pustule [Unknown]
  - Syncope [Unknown]
  - Abdominal pain [Unknown]
  - Prostatomegaly [Unknown]
  - Device dislocation [Unknown]
  - Hypotension [Unknown]
  - Abdominal distension [Unknown]
  - Ascites [Unknown]
  - Infusion site haemorrhage [Unknown]
  - Infusion site erythema [Unknown]
  - Drug dose omission [Unknown]
  - Asthenia [Unknown]

NARRATIVE: CASE EVENT DATE: 201502
